FAERS Safety Report 7093852-0 (Version None)
Quarter: 2010Q4

REPORT INFORMATION
  Report Type: 
  Country: None (occurrence: None)
  Receive Date: 20101110
  Receipt Date: 20101105
  Transmission Date: 20110411
  Serious: Yes (Other)
  Sender: FDA-Public Use
  Company Number: A0891174A

PATIENT
  Age: 50 Year
  Sex: Male
  Weight: 81.8 kg

DRUGS (3)
  1. PAROXETINE HCL [Suspect]
     Indication: DEPRESSION
     Dosage: 37.5MG PER DAY
     Route: 048
     Dates: start: 20070101, end: 20101105
  2. SIMVASTATIN [Concomitant]
  3. UNKNOWN MEDICATION [Concomitant]
     Indication: SLEEP DISORDER

REACTIONS (10)
  - ABNORMAL DREAMS [None]
  - CHEST PAIN [None]
  - DEPRESSION [None]
  - DRUG INEFFECTIVE [None]
  - INSOMNIA [None]
  - NIGHTMARE [None]
  - PANIC ATTACK [None]
  - PRODUCT QUALITY ISSUE [None]
  - SUICIDAL IDEATION [None]
  - WITHDRAWAL SYNDROME [None]
